FAERS Safety Report 19427347 (Version 1)
Quarter: 2021Q2

REPORT INFORMATION
  Report Type: Spontaneous
  Country: IT (occurrence: IT)
  Receive Date: 20210617
  Receipt Date: 20210617
  Transmission Date: 20210717
  Serious: Yes (Other)
  Sender: FDA-Public Use
  Company Number: NVSC2021IT132388

PATIENT
  Age: 64 Year
  Sex: Female

DRUGS (5)
  1. KISQALI [Suspect]
     Active Substance: RIBOCICLIB
     Indication: INVASIVE LOBULAR BREAST CARCINOMA
     Dosage: 3 DF, QD
     Route: 048
     Dates: start: 20201020, end: 20210506
  2. TREDIMIN [Concomitant]
     Indication: PRODUCT USED FOR UNKNOWN INDICATION
     Dosage: 50000 IU 950.000 U.I./2.5 ML)
     Route: 048
  3. OLMETEC [Concomitant]
     Active Substance: OLMESARTAN MEDOXOMIL
     Indication: ESSENTIAL HYPERTENSION
     Dosage: 40 MG
     Route: 048
  4. FASLODEX [Concomitant]
     Active Substance: FULVESTRANT
     Indication: INVASIVE LOBULAR BREAST CARCINOMA
     Dosage: UNK
     Route: 030
     Dates: start: 20201020, end: 20210506
  5. HALDOL [Concomitant]
     Active Substance: HALOPERIDOL
     Indication: AFFECTIVE DISORDER
     Dosage: 10 DRP (1/12 MILLILITRE)
     Route: 048

REACTIONS (1)
  - Osteonecrosis of jaw [Recovering/Resolving]

NARRATIVE: CASE EVENT DATE: 20210318
